FAERS Safety Report 4533662-9 (Version None)
Quarter: 2004Q4

REPORT INFORMATION
  Report Type: 
  Country: None (occurrence: None)
  Receive Date: 20041210
  Receipt Date: 20040927
  Transmission Date: 20050328
  Serious: No
  Sender: FDA-Public Use
  Company Number: 2004-00574

PATIENT
  Age: 75 Year
  Sex: Female
  Weight: 74.4 kg

DRUGS (3)
  1. VELCADE [Suspect]
     Indication: MULTIPLE MYELOMA
     Dosage: IV BOLUS
     Route: 040
  2. DEXAMETHASONE [Concomitant]
  3. ENALAPRIL (ENALAPRIL) [Concomitant]

REACTIONS (2)
  - ASTHENIA [None]
  - PARAESTHESIA [None]
